FAERS Safety Report 23898905 (Version 1)
Quarter: 2024Q2

REPORT INFORMATION
  Report Type: Spontaneous
  Country: US (occurrence: US)
  Receive Date: 20240525
  Receipt Date: 20240525
  Transmission Date: 20240716
  Serious: No
  Sender: FDA-Public Use
  Company Number: US-EPICPHARMA-US-2024EPCSPO00540

PATIENT

DRUGS (1)
  1. RIFAMPIN [Suspect]
     Active Substance: RIFAMPIN
     Indication: Product use in unapproved indication
     Route: 065

REACTIONS (2)
  - Wheezing [Unknown]
  - Productive cough [Unknown]
